FAERS Safety Report 12471773 (Version 1)
Quarter: 2016Q2

REPORT INFORMATION
  Report Type: Report from Study
  Country: US (occurrence: US)
  Receive Date: 20160616
  Receipt Date: 20160616
  Transmission Date: 20160815
  Serious: No
  Sender: FDA-Public Use
  Company Number: US-AMGEN-USASL2016075392

PATIENT
  Age: 35 Year
  Sex: Male

DRUGS (1)
  1. ENBREL [Suspect]
     Active Substance: ETANERCEPT
     Indication: PSORIASIS
     Dosage: 50 MG, 2 TIMES/WK
     Route: 065
     Dates: start: 201605

REACTIONS (10)
  - Fatigue [Unknown]
  - Head discomfort [Unknown]
  - Throat irritation [Unknown]
  - Headache [Unknown]
  - Therapeutic response decreased [Recovering/Resolving]
  - Nasopharyngitis [Unknown]
  - Weight increased [Unknown]
  - Sinus disorder [Unknown]
  - Malaise [Not Recovered/Not Resolved]
  - Frustration tolerance decreased [Unknown]

NARRATIVE: CASE EVENT DATE: 2016
